FAERS Safety Report 12326663 (Version 1)
Quarter: 2016Q2

REPORT INFORMATION
  Report Type: Spontaneous
  Country: PR (occurrence: PR)
  Receive Date: 20160503
  Receipt Date: 20160503
  Transmission Date: 20160815
  Serious: No
  Sender: FDA-Public Use
  Company Number: PR-BAYER-2016-083851

PATIENT
  Age: 46 Year
  Sex: Female

DRUGS (1)
  1. GADAVIST [Suspect]
     Active Substance: GADOBUTROL
     Indication: NUCLEAR MAGNETIC RESONANCE IMAGING
     Dosage: 7 ML, ONCE
     Dates: start: 20160429, end: 20160429

REACTIONS (6)
  - Vomiting [Recovered/Resolved]
  - Skin irritation [None]
  - Eye oedema [Recovering/Resolving]
  - Dysphagia [Recovered/Resolved]
  - Nausea [Recovered/Resolved]
  - Pruritus [None]
